FAERS Safety Report 24798868 (Version 1)
Quarter: 2025Q1

REPORT INFORMATION
  Report Type: Spontaneous
  Country: DK (occurrence: DK)
  Receive Date: 20250102
  Receipt Date: 20250102
  Transmission Date: 20250409
  Serious: Yes (Hospitalization)
  Sender: AUROBINDO
  Company Number: DK-DKMA-31003777

PATIENT
  Age: 58 Year
  Sex: Female
  Weight: 62 kg

DRUGS (5)
  1. AMOXICILLIN\CLAVULANIC ACID [Suspect]
     Active Substance: AMOXICILLIN\CLAVULANIC ACID
     Indication: Pharyngitis
     Route: 048
     Dates: start: 20241020, end: 20241026
  2. PENICILLIN V POTASSIUM [Concomitant]
     Active Substance: PENICILLIN V POTASSIUM
     Indication: Pharyngitis
     Route: 048
     Dates: start: 20241018
  3. METRONIDAZOLE [Concomitant]
     Active Substance: METRONIDAZOLE
     Indication: Oral infection
     Route: 065
     Dates: start: 20241023
  4. METRONIDAZOLE [Concomitant]
     Active Substance: METRONIDAZOLE
     Indication: Tooth infection
  5. METRONIDAZOLE [Concomitant]
     Active Substance: METRONIDAZOLE
     Indication: Osteitis

REACTIONS (7)
  - Pruritus [Not Recovered/Not Resolved]
  - Nausea [Recovered/Resolved]
  - Vomiting [Recovered/Resolved]
  - Jaundice [Recovered/Resolved]
  - Abdominal pain [Recovered/Resolved]
  - Chromaturia [Recovered/Resolved]
  - Faeces discoloured [Recovered/Resolved]

NARRATIVE: CASE EVENT DATE: 20241101
